FAERS Safety Report 11996577 (Version 1)
Quarter: 2016Q1

REPORT INFORMATION
  Report Type: Spontaneous
  Country: US (occurrence: US)
  Receive Date: 20160203
  Receipt Date: 20160203
  Transmission Date: 20160526
  Serious: No
  Sender: FDA-Public Use
  Company Number: US-GALDERMA-US15006446

PATIENT
  Age: 28 Year
  Sex: Female

DRUGS (9)
  1. EPIDUO [Suspect]
     Active Substance: ADAPALENE\BENZOYL PEROXIDE
     Indication: ACNE
     Dosage: 0.1% / 2.5%
     Route: 061
     Dates: start: 20140407
  2. LUSH VANISHING CREAM [Concomitant]
     Indication: DRY SKIN PROPHYLAXIS
     Route: 061
  3. BENZOCLINE [Concomitant]
     Indication: PRODUCT USED FOR UNKNOWN INDICATION
  4. LUSH ANGELS ON FAIR SKIN EXFOLIANT [Concomitant]
     Indication: THERAPEUTIC SKIN CARE TOPICAL
     Route: 061
  5. LUSH ULTRA BLAND CLEANSER [Concomitant]
     Indication: THERAPEUTIC SKIN CARE TOPICAL
     Route: 061
  6. EPIDUO [Suspect]
     Active Substance: ADAPALENE\BENZOYL PEROXIDE
     Indication: ACNE
     Dosage: 0.1% / 2.5%
     Route: 061
     Dates: start: 201504
  7. EPIDUO [Suspect]
     Active Substance: ADAPALENE\BENZOYL PEROXIDE
     Indication: ACNE
     Dosage: 0.1% / 2.5%
     Route: 061
     Dates: start: 2014
  8. LUSH TONER [Concomitant]
     Route: 061
  9. LUSH FULL OF GRACE SERUM [Concomitant]
     Indication: PRODUCT USED FOR UNKNOWN INDICATION
     Route: 061

REACTIONS (8)
  - Eye irritation [Recovered/Resolved]
  - Skin exfoliation [Recovered/Resolved]
  - Scar [Recovered/Resolved]
  - Erythema [Recovered/Resolved]
  - Eyelids pruritus [Recovered/Resolved]
  - Dermatitis contact [Recovered/Resolved]
  - Ocular hyperaemia [Recovered/Resolved]
  - Eyelid exfoliation [Recovered/Resolved]

NARRATIVE: CASE EVENT DATE: 2014
